FAERS Safety Report 12999846 (Version 1)
Quarter: 2016Q4

REPORT INFORMATION
  Report Type: Spontaneous
  Country: US (occurrence: US)
  Receive Date: 20161205
  Receipt Date: 20161205
  Transmission Date: 20170207
  Serious: No
  Sender: FDA-Public Use
  Company Number: US-009507513-1611USA010147

PATIENT
  Sex: Female
  Weight: 122.45 kg

DRUGS (1)
  1. IMPLANON [Suspect]
     Active Substance: ETONOGESTREL
     Indication: CONTRACEPTION
     Dosage: 1 ROD UP TO 3 YEARS
     Route: 059
     Dates: start: 20120114

REACTIONS (3)
  - Vaginal haemorrhage [Unknown]
  - Incorrect drug administration duration [Unknown]
  - Menorrhagia [Unknown]

NARRATIVE: CASE EVENT DATE: 2013
